FAERS Safety Report 9779473 (Version 1)
Quarter: 2013Q4

REPORT INFORMATION
  Report Type: Spontaneous
  Country: US (occurrence: US)
  Receive Date: 20131223
  Receipt Date: 20131223
  Transmission Date: 20140711
  Serious: Yes (Death, Hospitalization)
  Sender: FDA-Public Use
  Company Number: US-CUBIST PHARMACEUTICAL, INC.-2013CBST001387

PATIENT
  Sex: 0

DRUGS (3)
  1. CUBICIN [Suspect]
     Indication: ENTEROCOCCAL BACTERAEMIA
     Dosage: 6 OR 8 MG/KG/DAY
     Route: 042
  2. CUBICIN [Suspect]
     Indication: OFF LABEL USE
  3. LINEZOLID [Suspect]
     Indication: ENTEROCOCCAL BACTERAEMIA
     Dosage: UNK UNK UNK
     Route: 065

REACTIONS (3)
  - Septic shock [Fatal]
  - Drug ineffective for unapproved indication [Unknown]
  - Antimicrobial susceptibility test resistant [Unknown]
